FAERS Safety Report 8067882 (Version 5)
Quarter: 2013Q2

REPORT INFORMATION
  Report Type: Spontaneous
  Country: US (occurrence: None)
  Receive Date: 20110722
  Receipt Date: 20130531
  Transmission Date: 20140414
  Serious: Yes (Other)
  Sender: FDA-Public Use
  Company Number: CIP11001688

PATIENT
  Age: 65 Year
  Sex: Female
  Weight: 73.5 kg

DRUGS (9)
  1. ACTONEL [Suspect]
     Dosage: ORAL
     Route: 048
     Dates: start: 20090831, end: 201002
  2. FOSAMAX [Suspect]
     Indication: OSTEOPOROSIS
     Dosage: 70 MG ONCE WEEKLY
     Dates: start: 20010702, end: 200908
  3. FOSAMAX [Suspect]
     Dosage: 70 MG ONCE WEEKLY
     Dates: start: 20010702, end: 200908
  4. ALENDRONATE SODIUM [Suspect]
     Indication: OSTEOPOROSIS
     Dates: start: 201002, end: 201003
  5. ALENDRONATE SODIUM [Suspect]
     Indication: OSTEOPENIA
     Dates: start: 201002, end: 201003
  6. ARIMIDEX [Concomitant]
  7. EFFEXOR [Concomitant]
  8. METOPROLOL [Concomitant]
  9. SIMVASTATIN [Concomitant]

REACTIONS (9)
  - Pathological fracture [None]
  - Stress fracture [None]
  - Femur fracture [None]
  - Pain in extremity [None]
  - Low turnover osteopathy [None]
  - Bone disorder [None]
  - Gait disturbance [None]
  - Fall [None]
  - Fracture delayed union [None]
